FAERS Safety Report 8822590 (Version 1)
Quarter: 2012Q4

REPORT INFORMATION
  Report Type: 
  Country: CA (occurrence: CA)
  Receive Date: 20121003
  Receipt Date: 20121003
  Transmission Date: 20130627
  Serious: Yes (Hospitalization)
  Sender: FDA-Public Use
  Company Number: CA-B.I. PHARMACEUTICALS,INC./RIDGEFIELD-2012-CN-01970CN

PATIENT
  Age: 73 Year
  Sex: Male

DRUGS (3)
  1. PRADAX [Suspect]
     Indication: CEREBROVASCULAR ACCIDENT PROPHYLAXIS
     Dosage: 300 mg
     Route: 048
     Dates: start: 201106
  2. PRADAX [Suspect]
     Indication: ATRIAL FIBRILLATION
  3. METOPROLOL [Concomitant]

REACTIONS (2)
  - Colon cancer [Recovered/Resolved]
  - Haematochezia [Recovered/Resolved]
